FAERS Safety Report 14685625 (Version 1)
Quarter: 2018Q1

REPORT INFORMATION
  Report Type: Spontaneous
  Country: US (occurrence: US)
  Receive Date: 20180327
  Receipt Date: 20180327
  Transmission Date: 20180509
  Serious: Yes (Hospitalization)
  Sender: FDA-Public Use
  Company Number: US-FRESENIUS MEDICAL CARE RENAL THERAPIES GROUP-FMC-1803-000536

PATIENT
  Sex: Male

DRUGS (16)
  1. FLUTICASONE. [Concomitant]
     Active Substance: FLUTICASONE
  2. LORATADINE. [Concomitant]
     Active Substance: LORATADINE
  3. SIMVASTATIN. [Concomitant]
     Active Substance: SIMVASTATIN
  4. HYDRALAZINE [Concomitant]
     Active Substance: HYDRALAZINE HYDROCHLORIDE
  5. SEVELAMER [Concomitant]
     Active Substance: SEVELAMER
  6. DELFLEX [Suspect]
     Active Substance: CALCIUM CHLORIDE\DEXTROSE\MAGNESIUM CHLORIDE\SODIUM CHLORIDE\SODIUM LACTATE
     Indication: END STAGE RENAL DISEASE
     Route: 033
  7. ISOSORBIDE MONONITRATE. [Concomitant]
     Active Substance: ISOSORBIDE MONONITRATE
  8. PAROXETINE. [Concomitant]
     Active Substance: PAROXETINE
  9. TEMAZEPAM. [Concomitant]
     Active Substance: TEMAZEPAM
  10. BUMETANIDE. [Concomitant]
     Active Substance: BUMETANIDE
  11. SALBUTAMOL [Concomitant]
     Active Substance: ALBUTEROL
  12. ICOSAPENT ETHYL [Concomitant]
     Active Substance: ICOSAPENT ETHYL
  13. LEVOTHYROXINE. [Concomitant]
     Active Substance: LEVOTHYROXINE
  14. ZOLPIDEM [Concomitant]
     Active Substance: ZOLPIDEM\ZOLPIDEM TARTRATE
  15. CARVEDILOL. [Concomitant]
     Active Substance: CARVEDILOL
  16. CLOPIDOGREL [Concomitant]
     Active Substance: CLOPIDOGREL BISULFATE

REACTIONS (1)
  - Fluid overload [Recovered/Resolved]
